FAERS Safety Report 25501893 (Version 1)
Quarter: 2025Q3

REPORT INFORMATION
  Report Type: Spontaneous
  Country: IL (occurrence: IL)
  Receive Date: 20250702
  Receipt Date: 20250702
  Transmission Date: 20251021
  Serious: Yes (Death, Hospitalization, Other)
  Sender: NOVITIUM PHARMA
  Company Number: IL-NOVITIUMPHARMA-2025ILNVP01497

PATIENT
  Age: 57 Year
  Sex: Female

DRUGS (3)
  1. DEXAMETHASONE [Suspect]
     Active Substance: DEXAMETHASONE
     Indication: Astrocytoma malignant
  2. ACYCLOVIR [Suspect]
     Active Substance: ACYCLOVIR
     Indication: Herpes simplex encephalitis
  3. TEMOZOLOMIDE [Concomitant]
     Active Substance: TEMOZOLOMIDE
     Indication: Astrocytoma malignant

REACTIONS (2)
  - Herpes simplex encephalitis [Fatal]
  - Drug ineffective [Fatal]
